FAERS Safety Report 7131474-3 (Version None)
Quarter: 2010Q4

REPORT INFORMATION
  Report Type: 
  Country: None (occurrence: None)
  Receive Date: 20101201
  Receipt Date: 20101123
  Transmission Date: 20110411
  Serious: Yes (Life-Threatening)
  Sender: FDA-Public Use
  Company Number: PL-TEVA-256509ISR

PATIENT
  Sex: Female
  Weight: 91 kg

DRUGS (1)
  1. CISPLATIN [Suspect]
     Indication: OVARIAN CANCER
     Route: 042
     Dates: start: 20101022, end: 20101022

REACTIONS (4)
  - ERYTHEMA [None]
  - FEELING HOT [None]
  - MALAISE [None]
  - RESTLESSNESS [None]
